FAERS Safety Report 8977801 (Version 2)
Quarter: 2013Q1

REPORT INFORMATION
  Report Type: Report from Study
  Country: US (occurrence: US)
  Receive Date: 20121220
  Receipt Date: 20130130
  Transmission Date: 20140127
  Serious: Yes (Life-Threatening, Hospitalization)
  Sender: FDA-Public Use
  Company Number: US-ROCHE-1172183

PATIENT
  Age: 40 Year
  Sex: Male

DRUGS (2)
  1. CAPECITABINE [Suspect]
     Indication: COLORECTAL CANCER
     Route: 048
     Dates: start: 201010
  2. CAPECITABINE [Suspect]
     Indication: METASTASES TO LIVER

REACTIONS (2)
  - Abdominal pain [Unknown]
  - Stent removal [Unknown]
